FAERS Safety Report 16011468 (Version 1)
Quarter: 2019Q1

REPORT INFORMATION
  Report Type: Spontaneous
  Country: US (occurrence: US)
  Receive Date: 20190131
  Receipt Date: 20190131
  Transmission Date: 20190418
  Serious: Yes (Hospitalization)
  Sender: FDA-Public Use
  Company Number: None

PATIENT
  Age: 74 Year
  Sex: Female
  Weight: 57.88 kg

DRUGS (14)
  1. ATIVAN [Concomitant]
     Active Substance: LORAZEPAM
  2. MULTIVITAMIN [Concomitant]
     Active Substance: VITAMINS
  3. VITAMIN B COMPLEX [Concomitant]
     Active Substance: CYANOCOBALAMIN\DEXPANTHENOL\NIACINAMIDE\PYRIDOXINE HYDROCHLORIDE\RIBOFLAVIN 5^-PHOSPHATE SODIUM\THIAMINE HYDROCHLORIDE\VITAMIN B COMPLEX
  4. TUMS [Concomitant]
     Active Substance: CALCIUM CARBONATE
  5. CRANBERRY FRUIT EXTRACT [Concomitant]
  6. HYDROCHLOROTHIAZIDE. [Concomitant]
     Active Substance: HYDROCHLOROTHIAZIDE
  7. LEXAPRO [Concomitant]
     Active Substance: ESCITALOPRAM OXALATE
  8. MOTRIN [Concomitant]
     Active Substance: IBUPROFEN
  9. COMPAZINE BID [Concomitant]
  10. IMODIUM [Concomitant]
     Active Substance: LOPERAMIDE HYDROCHLORIDE
  11. PREVACID [Concomitant]
     Active Substance: LANSOPRAZOLE
  12. LOPRESSOR [Concomitant]
     Active Substance: METOPROLOL TARTRATE
  13. FOSTAMATINIB 100MG [Suspect]
     Active Substance: FOSTAMATINIB
     Indication: OVARIAN CANCER
     Route: 048
  14. MAGNESIUM [Concomitant]
     Active Substance: MAGNESIUM

REACTIONS (13)
  - Cystitis [None]
  - Pneumonia [None]
  - Rash erythematous [None]
  - Acute respiratory failure [None]
  - Pulmonary oedema [None]
  - Respiratory failure [None]
  - Chest X-ray abnormal [None]
  - Ascites [None]
  - Oedema peripheral [None]
  - Pneumonitis [None]
  - Hydronephrosis [None]
  - Metastases to lung [None]
  - Skin exfoliation [None]

NARRATIVE: CASE EVENT DATE: 20190102
